FAERS Safety Report 7728511-1 (Version None)
Quarter: 2011Q3

REPORT INFORMATION
  Report Type: 
  Country: None (occurrence: None)
  Receive Date: 20110906
  Receipt Date: 20110829
  Transmission Date: 20111222
  Serious: Yes (Hospitalization)
  Sender: FDA-Public Use
  Company Number: HR-BRISTOL-MYERS SQUIBB COMPANY-16013005

PATIENT
  Age: 81 Year
  Sex: Female

DRUGS (3)
  1. RAMIPRIL [Suspect]
  2. ACETYLSALICYLIC ACID SRT [Suspect]
  3. HYDROXYUREA [Suspect]
     Indication: PROPHYLAXIS
     Dosage: DECRAESED TO 500MG.

REACTIONS (1)
  - HYPERKALAEMIA [None]
